FAERS Safety Report 22136138 (Version 1)
Quarter: 2023Q1

REPORT INFORMATION
  Report Type: Spontaneous
  Country: US (occurrence: US)
  Receive Date: 20230324
  Receipt Date: 20230324
  Transmission Date: 20230418
  Serious: Yes (Other)
  Sender: FDA-Public Use
  Company Number: US-PERRIGO-23US003715

PATIENT
  Age: 76 Year
  Sex: Female
  Weight: 59.864 kg

DRUGS (4)
  1. MINOXIDIL [Suspect]
     Active Substance: MINOXIDIL
     Indication: Alopecia
     Dosage: 1 ML, 1 TO 2 TIMES DAILY
     Route: 061
     Dates: start: 202212, end: 20230319
  2. METFORMIN [Concomitant]
     Active Substance: METFORMIN HYDROCHLORIDE
     Indication: Blood glucose fluctuation
     Dosage: UNK
     Route: 065
     Dates: start: 2013
  3. LOSARTAN [Concomitant]
     Active Substance: LOSARTAN
     Indication: Hypertension
     Dosage: UNK
     Route: 065
     Dates: start: 2013
  4. LOVASTATIN [Concomitant]
     Active Substance: LOVASTATIN
     Indication: Hypertension
     Dosage: UNK
     Route: 065
     Dates: start: 2013

REACTIONS (9)
  - Atrial fibrillation [Recovered/Resolved]
  - Weight increased [Not Recovered/Not Resolved]
  - Heart rate increased [Recovered/Resolved]
  - Dizziness [Recovered/Resolved]
  - Peripheral swelling [Not Recovered/Not Resolved]
  - Joint swelling [Not Recovered/Not Resolved]
  - Product administered at inappropriate site [Recovered/Resolved]
  - Product dose omission issue [Recovered/Resolved]
  - Inappropriate schedule of product administration [Recovered/Resolved]

NARRATIVE: CASE EVENT DATE: 20221201
